FAERS Safety Report 5188862-4 (Version None)
Quarter: 2006Q4

REPORT INFORMATION
  Report Type: 
  Country: None (occurrence: None)
  Receive Date: 20061215
  Receipt Date: 20061204
  Transmission Date: 20070319
  Serious: Yes (Death)
  Sender: FDA-Public Use
  Company Number: 2005041871

PATIENT
  Age: 34 Year
  Sex: Male
  Weight: 102.0593 kg

DRUGS (2)
  1. NEURONTIN [Suspect]
     Indication: PAIN
  2. TALWIN [Suspect]

REACTIONS (3)
  - COMPLETED SUICIDE [None]
  - DRUG TOXICITY [None]
  - INTENTIONAL OVERDOSE [None]
